FAERS Safety Report 10333725 (Version 1)
Quarter: 2014Q3

REPORT INFORMATION
  Report Type: Report from Study
  Country: US (occurrence: US)
  Receive Date: 20140723
  Receipt Date: 20140723
  Transmission Date: 20150326
  Serious: Yes (Hospitalization)
  Sender: FDA-Public Use
  Company Number: US-ACTELION-A-NJ2014-102402

PATIENT
  Age: 87 Year
  Sex: Male

DRUGS (3)
  1. RIOCIGUAT [Concomitant]
     Active Substance: RIOCIGUAT
  2. MACITENTAN [Suspect]
     Active Substance: MACITENTAN
     Indication: OBSTRUCTIVE AIRWAYS DISORDER
     Dosage: 10 MG, QD
     Route: 048
     Dates: start: 20140618
  3. WARFARIN [Concomitant]
     Active Substance: WARFARIN

REACTIONS (1)
  - Musculoskeletal pain [Unknown]
